FAERS Safety Report 8813542 (Version 1)
Quarter: 2012Q4

REPORT INFORMATION
  Report Type: 
  Country: US (occurrence: US)
  Receive Date: 20120927
  Receipt Date: 20120927
  Transmission Date: 20130627
  Serious: No
  Sender: FDA-Public Use
  Company Number: US-AMGEN-USASP2012053237

PATIENT
  Age: 81 Year
  Sex: Female

DRUGS (3)
  1. PROLIA [Suspect]
     Indication: OSTEOPOROSIS POSTMENOPAUSAL
     Dosage: UNK UNK, q6mo
     Dates: start: 20120228
  2. CALCIUM [Concomitant]
     Dosage: UNK
     Dates: start: 2012
  3. VITAMIN D /00107901/ [Concomitant]
     Dosage: UNK
     Dates: start: 2012

REACTIONS (8)
  - Memory impairment [Recovered/Resolved]
  - Pain in jaw [Recovered/Resolved]
  - Hypoaesthesia [Recovered/Resolved]
  - Vitamin D deficiency [Not Recovered/Not Resolved]
  - Hypoaesthesia oral [Recovered/Resolved]
  - Musculoskeletal discomfort [Not Recovered/Not Resolved]
  - Myalgia [Unknown]
  - Back pain [Not Recovered/Not Resolved]
